FAERS Safety Report 10699705 (Version 1)
Quarter: 2015Q1

REPORT INFORMATION
  Report Type: Spontaneous
  Country: MY (occurrence: MY)
  Receive Date: 20150109
  Receipt Date: 20150109
  Transmission Date: 20150721
  Serious: Yes (Death, Other)
  Sender: FDA-Public Use
  Company Number: MY-CIPLA LTD.-2014MY03061

PATIENT

DRUGS (2)
  1. GEMCITABINE [Suspect]
     Active Substance: GEMCITABINE\GEMCITABINE HYDROCHLORIDE
     Indication: MYCOSIS FUNGOIDES STAGE II
     Dosage: (1000 MG/M2/DAY) FIVE CYCLES, ON DAYS 1 AND 8, FOLLOWED BY A 2-WEEK BREAK
     Route: 042
  2. VINORELBINE [Suspect]
     Active Substance: VINORELBINE\VINORELBINE TARTRATE
     Indication: MYCOSIS FUNGOIDES STAGE II
     Dosage: 40 MG, FIVE CYCLES, ON DAYS 1 AND 8, FOLLOWED BY A 2-WEEK BREAK.
     Route: 042

REACTIONS (2)
  - Death [Fatal]
  - Nodule [Unknown]
